FAERS Safety Report 7271122-5 (Version None)
Quarter: 2011Q1

REPORT INFORMATION
  Report Type: 
  Country: None (occurrence: None)
  Receive Date: 20110202
  Receipt Date: 20110121
  Transmission Date: 20110831
  Serious: Yes (Hospitalization)
  Sender: FDA-Public Use
  Company Number: JP-GILEAD-E2B_00001060

PATIENT
  Age: 54 Year
  Sex: Male

DRUGS (2)
  1. LAMIVUDINE(PEPFAR) [Suspect]
     Indication: PRODUCT USED FOR UNKNOWN INDICATION
     Dosage: 100MG PER DAY
     Route: 048
     Dates: start: 20041017, end: 20100319
  2. ADEFOVIR DIPIVOXIL KIT [Suspect]
     Indication: PRODUCT USED FOR UNKNOWN INDICATION
     Dosage: 10MCG PER DAY
     Route: 048
     Dates: start: 20060328, end: 20100319

REACTIONS (10)
  - SPINAL COMPRESSION FRACTURE [None]
  - OSTEOPOROSIS [None]
  - PELVIC FRACTURE [None]
  - RIB FRACTURE [None]
  - GAIT DISTURBANCE [None]
  - OSTEONECROSIS [None]
  - BACK PAIN [None]
  - FANCONI SYNDROME ACQUIRED [None]
  - RENAL TUBULAR DISORDER [None]
  - HYPOPHOSPHATAEMIA [None]
